FAERS Safety Report 4315978-4 (Version None)
Quarter: 2004Q1

REPORT INFORMATION
  Report Type: 
  Country: None (occurrence: None)
  Receive Date: 20040310
  Receipt Date: 20040302
  Transmission Date: 20041129
  Serious: Yes (Death)
  Sender: FDA-Public Use
  Company Number: 2004201586SE

PATIENT
  Age: 16 Year
  Sex: Female

DRUGS (3)
  1. CYTOTEC [Suspect]
     Indication: ABORTION
     Dosage: 0.4 MG, SINGLE, UNK
     Dates: start: 20030528, end: 20030528
  2. DICLOFENAC ^NM PHARMA^ (DICLOFENAC SODIUM) SUPPOSITORY, 100MG [Suspect]
     Dosage: 100 MG, SINGLE, UNK
     Dates: start: 20030528, end: 20030528
  3. MIFEPRISTONE (MIFEPRISTONE) TABLET, 200MG [Suspect]
     Indication: ABORTION
     Dosage: 600 MG, SINGLE, UNK
     Dates: start: 20030526, end: 20030526

REACTIONS (2)
  - REFUSAL OF TREATMENT BY PATIENT [None]
  - VAGINAL HAEMORRHAGE [None]
